FAERS Safety Report 17063689 (Version 1)
Quarter: 2019Q4

REPORT INFORMATION
  Report Type: Spontaneous
  Country: US (occurrence: US)
  Receive Date: 20191122
  Receipt Date: 20191122
  Transmission Date: 20200122
  Serious: No
  Sender: FDA-Public Use
  Company Number: US-ZYDUS-040203

PATIENT
  Sex: Female

DRUGS (5)
  1. RIOCIGUAT. [Concomitant]
     Active Substance: RIOCIGUAT
     Indication: PRODUCT USED FOR UNKNOWN INDICATION
     Route: 065
  2. RIVAROXABAN [Concomitant]
     Active Substance: RIVAROXABAN
     Indication: PRODUCT USED FOR UNKNOWN INDICATION
     Route: 065
  3. DILTIAZEM. [Concomitant]
     Active Substance: DILTIAZEM
     Indication: PRODUCT USED FOR UNKNOWN INDICATION
     Route: 065
  4. TREPROSTINIL. [Concomitant]
     Active Substance: TREPROSTINIL
     Indication: PRODUCT USED FOR UNKNOWN INDICATION
     Route: 065
  5. BOSENTAN. [Suspect]
     Active Substance: BOSENTAN
     Indication: PULMONARY HYPERTENSION
     Route: 048
     Dates: start: 20190730

REACTIONS (11)
  - Diarrhoea [Unknown]
  - Breast pain [Unknown]
  - Weight decreased [Unknown]
  - Insomnia [Unknown]
  - Lymphadenopathy [Unknown]
  - Rash [Unknown]
  - Injection site pain [Unknown]
  - Peripheral swelling [Unknown]
  - Haemorrhoids [Unknown]
  - Nausea [Unknown]
  - Decreased appetite [Unknown]
